FAERS Safety Report 8114775 (Version 2)
Quarter: 2013Q3

REPORT INFORMATION
  Report Type: Spontaneous
  Country: US (occurrence: US)
  Receive Date: 20110831
  Receipt Date: 20130819
  Transmission Date: 20140515
  Serious: Yes (Other)
  Sender: FDA-Public Use
  Company Number: US-GENZYME-THYR-1000555

PATIENT
  Age: 70 Year
  Sex: Male
  Weight: 119.27 kg

DRUGS (2)
  1. THYROGEN [Suspect]
     Indication: DIAGNOSTIC PROCEDURE
     Dosage: 0.9 MG, QD
     Route: 030
     Dates: start: 20101025, end: 20101026
  2. IODINE (131 I) [Suspect]
     Indication: WHOLE BODY SCAN
     Dosage: 4.7 MCI, ONCE
     Route: 065
     Dates: start: 20101029, end: 20101029

REACTIONS (1)
  - Dermatitis exfoliative [Recovered/Resolved with Sequelae]
